FAERS Safety Report 4316907-X (Version None)
Quarter: 2004Q1

REPORT INFORMATION
  Report Type: 
  Country: None (occurrence: None)
  Receive Date: 20040309
  Receipt Date: 20031201
  Transmission Date: 20041129
  Serious: Yes (Other)
  Sender: FDA-Public Use
  Company Number: A03200302554

PATIENT
  Age: 62 Year
  Sex: Female
  Weight: 76.2043 kg

DRUGS (6)
  1. ELOXATIN [Suspect]
     Indication: COLORECTAL CANCER
     Dosage: 15 G Q2W - INTRAVENOUS NOS
     Route: 042
     Dates: start: 20031015, end: 20031015
  2. ELOXATIN [Suspect]
     Indication: METASTASES TO LIVER
     Dosage: 15 G Q2W - INTRAVENOUS NOS
     Route: 042
     Dates: start: 20031015, end: 20031015
  3. FLUOROURACIL [Concomitant]
  4. LEUCOVORIN [Concomitant]
  5. DOLASETRON MESILATE [Concomitant]
  6. DEXAMETHASONE [Concomitant]

REACTIONS (7)
  - BLOOD CREATININE INCREASED [None]
  - BLOOD UREA INCREASED [None]
  - DIARRHOEA [None]
  - HYPOCALCAEMIA [None]
  - HYPOKALAEMIA [None]
  - HYPOMAGNESAEMIA [None]
  - PERIPHERAL COLDNESS [None]
